FAERS Safety Report 8319545-7 (Version None)
Quarter: 2012Q2

REPORT INFORMATION
  Report Type: 
  Country: None (occurrence: None)
  Receive Date: 20120427
  Receipt Date: 20120424
  Transmission Date: 20120825
  Serious: Yes (Hospitalization, Other)
  Sender: FDA-Public Use
  Company Number: US-PFIZER INC-2012071439

PATIENT
  Sex: Male

DRUGS (9)
  1. DARIFENACIN [Concomitant]
     Indication: MICTURITION URGENCY
  2. DARIFENACIN [Concomitant]
     Indication: PAIN
     Dosage: UNK
  3. OXYBUTYNIN [Concomitant]
     Indication: PAIN
     Dosage: UNK
  4. SUTENT [Suspect]
     Dosage: 25 MG, 1X/DAY
     Route: 048
     Dates: start: 20111001, end: 20110101
  5. SUTENT [Suspect]
     Indication: METASTATIC RENAL CELL CARCINOMA
     Dosage: 50 MG, 1X/DAY
     Route: 048
     Dates: start: 20101001, end: 20111001
  6. SUTENT [Suspect]
     Dosage: 37.5 MG, 1X/DAY
     Route: 048
     Dates: start: 20110101
  7. IMODIUM A-D [Concomitant]
     Indication: DIARRHOEA
     Dosage: UNK
     Dates: start: 20110101
  8. LOMOTIL [Concomitant]
     Indication: DIARRHOEA
     Dosage: UNK
     Dates: start: 20100101
  9. OXYBUTYNIN [Concomitant]
     Indication: MICTURITION URGENCY

REACTIONS (10)
  - GAIT DISTURBANCE [None]
  - ARTHRALGIA [None]
  - DIARRHOEA [None]
  - NAUSEA [None]
  - DEHYDRATION [None]
  - FEELING ABNORMAL [None]
  - LOSS OF CONSCIOUSNESS [None]
  - HYPERTENSION [None]
  - HEARING IMPAIRED [None]
  - TINNITUS [None]
